FAERS Safety Report 5454611-5 (Version None)
Quarter: 2007Q3

REPORT INFORMATION
  Report Type: 
  Country: None (occurrence: None)
  Receive Date: 20070917
  Receipt Date: 20070531
  Transmission Date: 20080115
  Serious: Yes (Other)
  Sender: FDA-Public Use
  Company Number: US-ASTRAZENECA-2006UW11515

PATIENT
  Age: 39 Year
  Sex: Male
  Weight: 62.3 kg

DRUGS (6)
  1. SEROQUEL [Suspect]
     Indication: ANXIETY
     Dosage: 400 MG - 600 MG
     Route: 048
     Dates: start: 20050101, end: 20060316
  2. SEROQUEL [Suspect]
     Indication: BIPOLAR DISORDER
     Dosage: 400 MG - 600 MG
     Route: 048
     Dates: start: 20050101, end: 20060316
  3. SEROQUEL [Suspect]
     Indication: DEPRESSION
     Dosage: 400 MG - 600 MG
     Route: 048
     Dates: start: 20050101, end: 20060316
  4. METFORMIN HCL [Concomitant]
  5. INSULIN [Concomitant]
  6. ZYPREXA [Concomitant]
     Dates: start: 20040101

REACTIONS (2)
  - DIABETES MELLITUS [None]
  - PANCREATITIS [None]
